FAERS Safety Report 5659450-8 (Version None)
Quarter: 2008Q1

REPORT INFORMATION
  Report Type: 
  Country: None (occurrence: None)
  Receive Date: 20080311
  Receipt Date: 20080228
  Transmission Date: 20080703
  Serious: Yes (Hospitalization, Other)
  Sender: FDA-Public Use
  Company Number: HQWYE999803OCT03

PATIENT
  Sex: Female

DRUGS (1)
  1. PREMPRO [Suspect]
     Dosage: UNKNOWN
     Route: 048

REACTIONS (3)
  - CARDIAC DISORDER [None]
  - PULMONARY EMBOLISM [None]
  - THROMBOSIS [None]
